FAERS Safety Report 14314933 (Version 2)
Quarter: 2018Q1

REPORT INFORMATION
  Report Type: Spontaneous
  Country: DE (occurrence: DE)
  Receive Date: 20171221
  Receipt Date: 20180226
  Transmission Date: 20180509
  Serious: Yes (Death)
  Sender: FDA-Public Use
  Company Number: DE-ELI_LILLY_AND_COMPANY-DE201712009619

PATIENT
  Age: 34 Year
  Sex: Female
  Weight: 65 kg

DRUGS (9)
  1. ELIQUIS [Concomitant]
     Active Substance: APIXABAN
     Indication: PULMONARY EMBOLISM
     Dosage: 10 MG, DAILY
     Route: 048
  2. FENTANYL. [Concomitant]
     Active Substance: FENTANYL
     Indication: PAIN
     Dosage: 150 UG, EVERY HOUR
     Route: 062
  3. DEXAMETHASONE. [Concomitant]
     Active Substance: DEXAMETHASONE
     Indication: PROPHYLAXIS
     Dosage: 4 MG, DAILY
     Route: 048
  4. SPASMEX /00376202/ [Concomitant]
     Active Substance: TROSPIUM CHLORIDE
     Indication: MICTURITION DISORDER
     Dosage: 45 MG, DAILY
     Route: 048
  5. DOXORUBICIN [Suspect]
     Active Substance: DOXORUBICIN
     Indication: SOFT TISSUE SARCOMA
     Dosage: 2 DF, UNKNOWN
     Route: 065
  6. PANTOPRAZOL                        /01263204/ [Concomitant]
     Active Substance: PANTOPRAZOLE SODIUM
     Indication: PROPHYLAXIS
     Dosage: 40 MG, DAILY
     Route: 048
  7. VENLAFAXIN [Concomitant]
     Active Substance: VENLAFAXINE HYDROCHLORIDE
     Indication: DEPRESSION
     Dosage: 225 MG, DAILY
     Route: 048
  8. TORASEMID [Concomitant]
     Active Substance: TORSEMIDE
     Indication: OEDEMA
     Dosage: 2 DF, DAILY
     Route: 048
  9. LARTRUVO [Suspect]
     Active Substance: OLARATUMAB
     Indication: SOFT TISSUE SARCOMA
     Dosage: 2 DF, UNKNOWN
     Route: 065

REACTIONS (5)
  - Respiratory distress [Fatal]
  - Hypoaesthesia [Fatal]
  - Diaphragmatic paralysis [Fatal]
  - Monoparesis [Fatal]
  - Paraparesis [Fatal]

NARRATIVE: CASE EVENT DATE: 201711
